FAERS Safety Report 6557676-2 (Version None)
Quarter: 2010Q1

REPORT INFORMATION
  Report Type: 
  Country: None (occurrence: None)
  Receive Date: 20100129
  Receipt Date: 20090410
  Transmission Date: 20100710
  Serious: No
  Sender: FDA-Public Use
  Company Number: A0778115A

PATIENT
  Sex: Female

DRUGS (3)
  1. EPIVIR [Suspect]
     Indication: HIV INFECTION
     Dosage: 150TAB TWICE PER DAY
     Route: 048
  2. ZIAGEN [Suspect]
     Indication: HIV INFECTION
     Dosage: 1TAB TWICE PER DAY
     Route: 048
  3. KALETRA [Concomitant]

REACTIONS (1)
  - SUNBURN [None]
